FAERS Safety Report 4469550-6 (Version None)
Quarter: 2004Q4

REPORT INFORMATION
  Report Type: 
  Country: None (occurrence: None)
  Receive Date: 20041008
  Receipt Date: 20040826
  Transmission Date: 20050328
  Serious: Yes (Hospitalization)
  Sender: FDA-Public Use
  Company Number: CA-BRISTOL-MYERS SQUIBB COMPANY-12685079

PATIENT
  Sex: Male

DRUGS (3)
  1. CISPLATIN [Suspect]
     Indication: BLADDER CANCER
     Dates: start: 20040629, end: 20040629
  2. GEMCITABINE [Suspect]
     Indication: BLADDER CANCER
     Dates: start: 20040713, end: 20040713
  3. MANNITOL [Concomitant]
     Dates: start: 20040629, end: 20040629

REACTIONS (1)
  - DEEP VEIN THROMBOSIS [None]
